FAERS Safety Report 6341672-4 (Version None)
Quarter: 2009Q3

REPORT INFORMATION
  Report Type: 
  Country: None (occurrence: None)
  Receive Date: 20090904
  Receipt Date: 20090831
  Transmission Date: 20100115
  Serious: Yes (Other)
  Sender: FDA-Public Use
  Company Number: US-SANOFI-SYNTHELABO-A03200903846

PATIENT
  Age: 31 Year
  Sex: Female

DRUGS (3)
  1. ALCOHOL [Suspect]
     Indication: DRUG USE FOR UNKNOWN INDICATION
     Dosage: UNK
     Route: 048
  2. AMBIEN [Suspect]
     Indication: DRUG USE FOR UNKNOWN INDICATION
     Dosage: UNK
     Route: 048
  3. OTHER DRUGS NOS [Suspect]
     Dosage: UNK
     Route: 065

REACTIONS (2)
  - COMA [None]
  - SUBSTANCE ABUSE [None]
